FAERS Safety Report 8564148-2 (Version None)
Quarter: 2012Q3

REPORT INFORMATION
  Report Type: 
  Country: None (occurrence: None)
  Receive Date: 20120803
  Receipt Date: 20120725
  Transmission Date: 20120928
  Serious: Yes (Other)
  Sender: FDA-Public Use
  Company Number: BR-JNJFOC-20120715349

PATIENT
  Sex: Male
  Weight: 77 kg

DRUGS (5)
  1. REMICADE [Suspect]
     Indication: ANKYLOSING SPONDYLITIS
     Route: 042
     Dates: start: 20120725
  2. HUMIRA [Concomitant]
     Indication: ANKYLOSING SPONDYLITIS
     Route: 065
  3. ALL OTHER THERAPEUTIC PRODUCTS [Concomitant]
     Indication: DIABETES MELLITUS
     Route: 065
  4. REMICADE [Suspect]
     Route: 042
     Dates: start: 20100101, end: 20110901
  5. ANTIHYPERTENSIVE [Concomitant]
     Indication: HYPERTENSION
     Route: 048

REACTIONS (3)
  - DIABETES MELLITUS [None]
  - INFUSION RELATED REACTION [None]
  - HYPERSENSITIVITY [None]
